FAERS Safety Report 6381492-8 (Version None)
Quarter: 2009Q3

REPORT INFORMATION
  Report Type: 
  Country: None (occurrence: None)
  Receive Date: 20090924
  Receipt Date: 20090915
  Transmission Date: 20100115
  Serious: Yes (Other)
  Sender: FDA-Public Use
  Company Number: 2009TJ0209

PATIENT
  Age: 47 Year
  Sex: Female

DRUGS (3)
  1. EPINEPHRINE [Suspect]
     Indication: HYPERSENSITIVITY
     Dosage: 0.3MG, AS NEEDED
     Dates: start: 20090605, end: 20090605
  2. ZOLOFT [Concomitant]
  3. AMOXICILLIN [Concomitant]

REACTIONS (1)
  - BLOOD POTASSIUM DECREASED [None]
